FAERS Safety Report 4835640-9 (Version None)
Quarter: 2005Q4

REPORT INFORMATION
  Report Type: 
  Country: None (occurrence: None)
  Receive Date: 20051121
  Receipt Date: 20051103
  Transmission Date: 20060501
  Serious: Yes (Other)
  Sender: FDA-Public Use
  Company Number: 2005156248

PATIENT
  Age: 77 Year
  Sex: Male
  Weight: 84 kg

DRUGS (7)
  1. DALTEPARIN SODIUM [Suspect]
     Indication: ILL-DEFINED DISORDER
     Dosage: SUBCUTANEOUS
     Route: 058
     Dates: start: 20051006
  2. WARFARIN SODIUM [Suspect]
     Indication: PULMONARY EMBOLISM
     Dosage: ORAL
     Route: 048
     Dates: start: 20051006, end: 20051017
  3. PARACETAMOL (PARACETAMOL) [Concomitant]
  4. CEFTRIAXONE [Concomitant]
  5. SANDO K (POTASSIUM CHLORIDE) [Concomitant]
  6. DIGOXIN [Concomitant]
  7. PHYTONADIONE [Concomitant]

REACTIONS (6)
  - ASTHENIA [None]
  - BLOOD PRESSURE DECREASED [None]
  - HAEMATOCHEZIA [None]
  - POLYP [None]
  - RECTAL HAEMORRHAGE [None]
  - THROMBOSIS [None]
